FAERS Safety Report 10085014 (Version 2)
Quarter: 2014Q2

REPORT INFORMATION
  Report Type: Spontaneous
  Country: US (occurrence: US)
  Receive Date: 20140417
  Receipt Date: 20140515
  Transmission Date: 20141212
  Serious: No
  Sender: FDA-Public Use
  Company Number: US-009507513-1404USA006945

PATIENT
  Age: 79 Year
  Sex: Female
  Weight: 63.49 kg

DRUGS (8)
  1. OXYTROL FOR WOMEN [Suspect]
     Indication: HYPERTONIC BLADDER
     Dosage: UNK, UNKNOWN
     Route: 062
     Dates: start: 20140202, end: 20140218
  2. OXYTROL FOR WOMEN [Suspect]
     Dosage: UNK, UNKNOWN
     Route: 062
     Dates: start: 20140406
  3. METOPROLOL [Concomitant]
     Indication: ATRIAL FIBRILLATION
     Dosage: 25 MG, UNKNOWN
  4. METOPROLOL [Concomitant]
     Indication: BLOOD PRESSURE ABNORMAL
  5. LEVOTHYROXINE SODIUM [Concomitant]
     Indication: HYPOTHYROIDISM
     Dosage: 25 MICROGRAM, UNKNOWN
  6. LEVOTHYROXINE SODIUM [Concomitant]
     Indication: PARATHYROID DISORDER
  7. WARFARIN [Concomitant]
     Indication: ATRIAL FIBRILLATION
     Dosage: 3 MG, UNKNOWN
  8. CLONAZEPAM [Concomitant]
     Indication: SLEEP APNOEA SYNDROME
     Dosage: 0.5 MG, UNKNOWN

REACTIONS (2)
  - Inappropriate schedule of drug administration [Unknown]
  - Drug effect decreased [Unknown]
